FAERS Safety Report 4513424-9 (Version None)
Quarter: 2004Q4

REPORT INFORMATION
  Report Type: 
  Country: None (occurrence: None)
  Receive Date: 20041130
  Receipt Date: 20040927
  Transmission Date: 20050328
  Serious: No
  Sender: FDA-Public Use
  Company Number: US-BRISTOL-MYERS SQUIBB COMPANY-12715728

PATIENT
  Age: 68 Year
  Sex: Male
  Weight: 108 kg

DRUGS (12)
  1. ERBITUX [Suspect]
     Indication: COLORECTAL CANCER
     Dosage: START DATE 09-JUL-04, WEEKLY TO 18-AUG-04 THEN STOPPED, RESUMED 29-SEP-04
     Route: 042
     Dates: start: 20040701, end: 20040701
  2. OXALIPLATIN [Suspect]
     Dosage: STOPPED, RESTARTED
  3. LEUCOVORIN CALCIUM [Suspect]
     Dosage: STOPPED, RESTARTED
  4. IRINOTECAN [Suspect]
     Dosage: STOPPED, RESTARTED
  5. PRILOSEC [Concomitant]
  6. LISINOPRIL [Concomitant]
  7. LASIX [Concomitant]
  8. POTASSIUM [Concomitant]
  9. SIMVASTATIN [Concomitant]
  10. ALBUTEROL [Concomitant]
     Dosage: NEBULIZER
  11. VENTOLIN [Concomitant]
  12. NITROQUICK [Concomitant]

REACTIONS (4)
  - DERMATITIS ACNEIFORM [None]
  - DIARRHOEA [None]
  - LOCALISED INFECTION [None]
  - NAIL DISORDER [None]
